FAERS Safety Report 10167999 (Version 1)
Quarter: 2014Q2

REPORT INFORMATION
  Report Type: Spontaneous
  Country: IT (occurrence: IT)
  Receive Date: 20140512
  Receipt Date: 20140512
  Transmission Date: 20141212
  Serious: Yes (Other)
  Sender: FDA-Public Use
  Company Number: IT-GLAXOSMITHKLINE-B0992468A

PATIENT
  Age: 48 Year
  Sex: Male

DRUGS (11)
  1. ZANTAC [Suspect]
     Indication: PREMEDICATION
     Dosage: 50MG CYCLIC
     Route: 042
     Dates: start: 20130822, end: 20140203
  2. GEMCITABINE [Suspect]
     Indication: PANCREATIC CARCINOMA
     Dosage: 170MG CYCLIC
     Route: 042
     Dates: start: 20130822, end: 20140203
  3. DECADRON [Suspect]
     Indication: PREMEDICATION
     Dosage: 4MG CYCLIC
     Route: 042
     Dates: start: 20130822, end: 20140203
  4. CREON [Concomitant]
  5. PANTORC [Concomitant]
  6. NOVORAPID [Concomitant]
  7. LEVEMIR [Concomitant]
  8. CRESTOR [Concomitant]
  9. EFFIENT [Concomitant]
  10. ZOFENOPRIL [Concomitant]
  11. PLAVIX [Concomitant]

REACTIONS (4)
  - Loss of consciousness [Recovered/Resolved]
  - Generalised tonic-clonic seizure [Recovered/Resolved]
  - Dizziness [Recovered/Resolved]
  - Malaise [Recovered/Resolved]
